FAERS Safety Report 18156508 (Version 1)
Quarter: 2020Q3

REPORT INFORMATION
  Report Type: Spontaneous
  Country: US (occurrence: US)
  Receive Date: 20200816
  Receipt Date: 20200816
  Transmission Date: 20201103
  Serious: Yes (Life-Threatening)
  Sender: FDA-Public Use
  Company Number: None

PATIENT
  Age: 72 Year
  Sex: Female
  Weight: 55.8 kg

DRUGS (8)
  1. CRESTOR [Concomitant]
     Active Substance: ROSUVASTATIN CALCIUM
  2. SYMBICORT [Concomitant]
     Active Substance: BUDESONIDE\FORMOTEROL FUMARATE DIHYDRATE
  3. ALBUTEROL. [Concomitant]
     Active Substance: ALBUTEROL
  4. MAGNESIUM [Concomitant]
     Active Substance: MAGNESIUM
  5. ALBUTEROL SULFATE. [Suspect]
     Active Substance: ALBUTEROL SULFATE
     Indication: ASTHMA
     Dosage: ?          OTHER STRENGTH:90;QUANTITY:2 PUFF(S);?
     Route: 055
     Dates: start: 20200815, end: 20200815
  6. SYNTHROID [Concomitant]
     Active Substance: LEVOTHYROXINE SODIUM
  7. VITAMIN D [Concomitant]
     Active Substance: VITAMIN D NOS
  8. VITAMIN A [Concomitant]
     Active Substance: VITAMIN A

REACTIONS (5)
  - Headache [None]
  - Drug ineffective [None]
  - Product odour abnormal [None]
  - Product taste abnormal [None]
  - Device delivery system issue [None]

NARRATIVE: CASE EVENT DATE: 20200815
